FAERS Safety Report 5831627-8 (Version None)
Quarter: 2008Q3

REPORT INFORMATION
  Report Type: 
  Country: None (occurrence: None)
  Receive Date: 20080730
  Receipt Date: 20080716
  Transmission Date: 20090109
  Serious: Yes (Death)
  Sender: FDA-Public Use
  Company Number: 2008AL008571

PATIENT
  Age: 64 Year
  Sex: Female
  Weight: 102.0593 kg

DRUGS (1)
  1. DIGOXIN [Suspect]
     Indication: CARDIAC DISORDER
     Dosage: QOD, PO
     Route: 048

REACTIONS (1)
  - DEATH [None]
